FAERS Safety Report 5845516-6 (Version None)
Quarter: 2008Q3

REPORT INFORMATION
  Report Type: 
  Country: None (occurrence: None)
  Receive Date: 20080814
  Receipt Date: 20080806
  Transmission Date: 20090109
  Serious: Yes (Life-Threatening)
  Sender: FDA-Public Use
  Company Number: US-JNJFOC-20080801796

PATIENT
  Sex: Male

DRUGS (4)
  1. REMICADE [Suspect]
  2. REMICADE [Suspect]
  3. REMICADE [Suspect]
  4. REMICADE [Suspect]
     Indication: CROHN'S DISEASE

REACTIONS (2)
  - CARDIAC ARREST [None]
  - INFUSION RELATED REACTION [None]
